FAERS Safety Report 7182906-6 (Version None)
Quarter: 2010Q4

REPORT INFORMATION
  Report Type: 
  Country: None (occurrence: None)
  Receive Date: 20101209
  Receipt Date: 20101123
  Transmission Date: 20110411
  Serious: Yes (Hospitalization)
  Sender: FDA-Public Use
  Company Number: 020248

PATIENT
  Age: 20 Year
  Sex: Male

DRUGS (1)
  1. CIMZIA [Suspect]
     Indication: OFF LABEL USE
     Dosage: (SUBCUTANEOUS)
     Route: 058
     Dates: start: 20100101, end: 20100101

REACTIONS (6)
  - EPSTEIN-BARR VIRUS TEST POSITIVE [None]
  - FEELING ABNORMAL [None]
  - OFF LABEL USE [None]
  - PYREXIA [None]
  - RASH GENERALISED [None]
  - VASCULITIS [None]
